FAERS Safety Report 24889752 (Version 1)
Quarter: 2025Q1

REPORT INFORMATION
  Report Type: Report from Study
  Country: CA (occurrence: CA)
  Receive Date: 20250127
  Receipt Date: 20250127
  Transmission Date: 20250409
  Serious: Yes (Other)
  Sender: SANDOZ
  Company Number: CA-002147023-NVSC2023CA040797

PATIENT
  Sex: Female

DRUGS (1)
  1. HYRIMOZ [Suspect]
     Active Substance: ADALIMUMAB-ADAZ
     Indication: Crohn^s disease
     Dosage: 40 MG, QW, LAST INJECTION ON 14-JAN-2025
     Route: 058
     Dates: start: 20220614

REACTIONS (8)
  - Rheumatoid arthritis [Unknown]
  - Faeces soft [Unknown]
  - Decreased appetite [Unknown]
  - Osteoporosis [Unknown]
  - Osteoarthritis [Unknown]
  - Fibromyalgia [Unknown]
  - Psoriasis [Unknown]
  - Off label use [Unknown]
